FAERS Safety Report 17415424 (Version 1)
Quarter: 2020Q1

REPORT INFORMATION
  Report Type: Spontaneous
  Country: US (occurrence: US)
  Receive Date: 20200213
  Receipt Date: 20200213
  Transmission Date: 20200409
  Serious: No
  Sender: FDA-Public Use
  Company Number: US-SA-2020SA037549

PATIENT
  Age: 52 Year
  Sex: Female

DRUGS (11)
  1. DUPIXENT [Suspect]
     Active Substance: DUPILUMAB
     Indication: ASTHMA
     Dosage: 300 MG, QOW
     Route: 058
     Dates: start: 20191017
  2. LISINOPRIL. [Concomitant]
     Active Substance: LISINOPRIL
  3. CARVEDILOL. [Concomitant]
     Active Substance: CARVEDILOL
  4. SOTALOL. [Concomitant]
     Active Substance: SOTALOL
  5. NITROFURANTIN [Concomitant]
     Active Substance: NITROFURANTOIN
  6. METHOTREXATE. [Concomitant]
     Active Substance: METHOTREXATE
  7. APAP/CODEINE [CODEINE;PARACETAMOL] [Concomitant]
  8. BUPROPION. [Concomitant]
     Active Substance: BUPROPION
  9. HYDROCODONE BITARTRATE AND ACETAMINOPHEN [Concomitant]
     Active Substance: ACETAMINOPHEN\HYDROCODONE BITARTRATE
  10. METHYLPRED [Concomitant]
     Active Substance: METHYLPREDNISOLONE
  11. FOLIC ACID. [Concomitant]
     Active Substance: FOLIC ACID

REACTIONS (1)
  - Foot fracture [Not Recovered/Not Resolved]
